FAERS Safety Report 7417108-9 (Version None)
Quarter: 2011Q2

REPORT INFORMATION
  Report Type: 
  Country: None (occurrence: None)
  Receive Date: 20110415
  Receipt Date: 20110204
  Transmission Date: 20111010
  Serious: No
  Sender: FDA-Public Use
  Company Number: US-B.I. PHARMACEUTICALS,INC./RIDGEFIELD-2011-BP-03767BP

PATIENT
  Age: 79 Year
  Sex: Female

DRUGS (9)
  1. SENNA-GEN [Concomitant]
  2. PRADAXA [Suspect]
     Dosage: 300 MG
     Route: 048
     Dates: start: 20110204
  3. DOCUSATE SODIUM [Concomitant]
  4. FUROSEMIDE [Concomitant]
  5. TRAZODONE [Concomitant]
  6. LIPITOR [Concomitant]
     Indication: BLOOD CHOLESTEROL
  7. DILITANITAM [Concomitant]
  8. FERROUS GLUC [Concomitant]
  9. ATENOLOL [Concomitant]

REACTIONS (2)
  - HAEMATOCHEZIA [None]
  - FLATULENCE [None]
